FAERS Safety Report 21294728 (Version 1)
Quarter: 2022Q3

REPORT INFORMATION
  Report Type: Report from Study
  Country: US (occurrence: US)
  Receive Date: 20220905
  Receipt Date: 20220905
  Transmission Date: 20221026
  Serious: Yes (Other)
  Sender: FDA-Public Use
  Company Number: US-NOVARTISPH-NVSC2022US197189

PATIENT
  Sex: Male

DRUGS (1)
  1. ENTRESTO [Suspect]
     Active Substance: SACUBITRIL\VALSARTAN
     Indication: Cardiac failure
     Dosage: 1 DOSAGE FORM, BID
     Route: 048
     Dates: start: 20220722

REACTIONS (6)
  - Pulmonary oedema [Recovering/Resolving]
  - Tinnitus [Unknown]
  - Epigastric discomfort [Unknown]
  - Pectus excavatum [Recovering/Resolving]
  - Vertigo [Unknown]
  - Dizziness [Unknown]
